FAERS Safety Report 4541039-5 (Version None)
Quarter: 2004Q4

REPORT INFORMATION
  Report Type: 
  Country: None (occurrence: None)
  Receive Date: 20041228
  Receipt Date: 20041220
  Transmission Date: 20050328
  Serious: Yes (Life-Threatening, Hospitalization)
  Sender: FDA-Public Use
  Company Number: 200413259GDS

PATIENT
  Age: 79 Year
  Sex: Female

DRUGS (4)
  1. ASPIRIN [Suspect]
     Dosage: 100 MG, TOTAL DAILY, ORAL
     Route: 048
  2. LONGES [Concomitant]
  3. NIVADIL [Concomitant]
  4. NEUROTROPIN [Concomitant]

REACTIONS (18)
  - ACUTE PRERENAL FAILURE [None]
  - ACUTE RESPIRATORY DISTRESS SYNDROME [None]
  - ANAEMIA [None]
  - ANTITHROMBIN III DECREASED [None]
  - AORTIC DISSECTION [None]
  - AORTIC THROMBOSIS [None]
  - CARDIAC TAMPONADE [None]
  - DISSEMINATED INTRAVASCULAR COAGULATION [None]
  - ESCHERICHIA URINARY TRACT INFECTION [None]
  - HAEMATOMA [None]
  - INTERNATIONAL NORMALISED RATIO INCREASED [None]
  - LOSS OF CONSCIOUSNESS [None]
  - MALNUTRITION [None]
  - PERICARDIAL HAEMORRHAGE [None]
  - PNEUMOCOCCAL INFECTION [None]
  - PNEUMONIA [None]
  - PROTHROMBIN TIME PROLONGED [None]
  - SEPTIC SHOCK [None]
